FAERS Safety Report 4547946-1 (Version None)
Quarter: 2004Q4

REPORT INFORMATION
  Report Type: 
  Country: None (occurrence: None)
  Receive Date: 20041220
  Receipt Date: 20040607
  Transmission Date: 20050328
  Serious: Yes (Hospitalization, Other)
  Sender: FDA-Public Use
  Company Number: US_000440499

PATIENT
  Age: 50 Year
  Sex: Female
  Weight: 116 kg

DRUGS (8)
  1. HUMALOG [Suspect]
     Indication: DIABETES MELLITUS
     Dosage: 25 U/4 DAY
     Dates: start: 19780101
  2. HUMULIN R [Suspect]
     Indication: DIABETES MELLITUS
     Dosage: 27 U/DAY
     Dates: start: 20000408
  3. HUMULIN 70/30 [Suspect]
     Indication: DIABETES MELLITUS
     Dosage: 90 U/2 DAY
  4. HUMULIN N [Suspect]
     Indication: DIABETES MELLITUS
     Dosage: 53 U/AT BEDTIME
     Dates: start: 20000408
  5. AVANDIA [Concomitant]
  6. GLIPIZIDE [Concomitant]
  7. ROSIGLITAZONE MALEATE [Concomitant]
  8. INSULIN GLARGINE [Concomitant]

REACTIONS (6)
  - BLOOD GLUCOSE FLUCTUATION [None]
  - BLOOD GLUCOSE INCREASED [None]
  - DRUG INTOLERANCE [None]
  - EYE DISORDER [None]
  - WEIGHT DECREASED [None]
  - WEIGHT INCREASED [None]
